FAERS Safety Report 4983486-3 (Version None)
Quarter: 2006Q2

REPORT INFORMATION
  Report Type: 
  Country: None (occurrence: None)
  Receive Date: 20060426
  Receipt Date: 20060307
  Transmission Date: 20061013
  Serious: Yes (Hospitalization, Disabling)
  Sender: FDA-Public Use
  Company Number: US-MERCK-0603USA01380

PATIENT
  Sex: Male

DRUGS (1)
  1. VIOXX [Suspect]
     Route: 048
     Dates: start: 19990101

REACTIONS (5)
  - ADVERSE EVENT [None]
  - ANHEDONIA [None]
  - EMOTIONAL DISORDER [None]
  - INJURY [None]
  - MYOCARDIAL INFARCTION [None]
